FAERS Safety Report 21140760 (Version 1)
Quarter: 2022Q3

REPORT INFORMATION
  Report Type: Spontaneous
  Country: US (occurrence: US)
  Receive Date: 20220728
  Receipt Date: 20220728
  Transmission Date: 20221026
  Serious: Yes (Death, Other)
  Sender: FDA-Public Use
  Company Number: US-BAXTER-2022BAX015630

PATIENT
  Age: 64 Year
  Sex: Male

DRUGS (13)
  1. IFOSFAMIDE [Suspect]
     Active Substance: IFOSFAMIDE
     Indication: Osteosarcoma
     Dosage: 1000 MG/M2, PLAN TO GIVE DAILY ON DAYS 1 THROUGH DAY 5
     Route: 065
  2. DOXORUBICIN [Suspect]
     Active Substance: DOXORUBICIN
     Indication: Osteosarcoma
     Dosage: 25 MG/M2, OVER 4 HOURS ON DAYS 1
     Route: 065
  3. DOXORUBICIN [Suspect]
     Active Substance: DOXORUBICIN
     Dosage: 3 DAYS OF DOXORUBICIN THERAPY TO COMPLETE CYCLE 1
     Route: 065
  4. DOXORUBICIN [Suspect]
     Active Substance: DOXORUBICIN
     Dosage: READMITTED 9 DAYS LATER FOR SCHEDULED CYCLE 2
     Route: 065
  5. FUROSEMIDE [Suspect]
     Active Substance: FUROSEMIDE
     Indication: Tumour lysis syndrome
     Route: 065
  6. CISPLATIN [Suspect]
     Active Substance: CISPLATIN
     Indication: Osteosarcoma
     Dosage: 100 MG/M2, OVER 2 HOURS ON DAY 1
     Route: 065
  7. CISPLATIN [Suspect]
     Active Substance: CISPLATIN
     Dosage: READMITTED 9 DAYS LATER FOR SCHEDULED CYCLE 2
     Route: 065
  8. LEUPROLIDE [Concomitant]
     Active Substance: LEUPROLIDE
     Indication: Prostate cancer
     Dosage: DEPOT FOR 2  YEARS
     Route: 065
  9. OXYGEN [Concomitant]
     Active Substance: OXYGEN
     Indication: Oxygen therapy
     Dosage: 1?2 L
     Route: 065
  10. OXYGEN [Concomitant]
     Active Substance: OXYGEN
     Dosage: WITH HIGH-FLOW NASAL CANNULA (50 L, 60%)
     Route: 045
  11. OXYGEN [Concomitant]
     Active Substance: OXYGEN
     Dosage: DISCHARGED HOME WITH OXYGEN ON HOSPITAL DAY (HD) 28
     Route: 065
  12. FUROSEMIDE [Concomitant]
     Active Substance: FUROSEMIDE
     Indication: Polyuria
     Route: 042
  13. MEROPENEM [Concomitant]
     Active Substance: MEROPENEM
     Indication: Escherichia bacteraemia
     Route: 065

REACTIONS (4)
  - Tumour lysis syndrome [Fatal]
  - Cardiac arrest [Fatal]
  - Hypoxia [Unknown]
  - Hypervolaemia [Unknown]
